FAERS Safety Report 14280120 (Version 2)
Quarter: 2017Q4

REPORT INFORMATION
  Report Type: Spontaneous
  Country: US (occurrence: US)
  Receive Date: 20171212
  Receipt Date: 20171222
  Transmission Date: 20180321
  Serious: Yes (Death)
  Sender: FDA-Public Use
  Company Number: US-IMPAX LABORATORIES, INC-2017-IPXL-03376

PATIENT
  Sex: Female
  Weight: 57 kg

DRUGS (3)
  1. RYTARY [Suspect]
     Active Substance: CARBIDOPA\LEVODOPA
     Indication: PARKINSON^S DISEASE
     Dosage: 36.25/145 MG, 3 DF, 6 /DAY AT 6A, 9A, 12P,3P,6P AND AT BEDTIME
     Route: 048
     Dates: start: 20170711
  2. IBUPROFEN. [Concomitant]
     Active Substance: IBUPROFEN
     Indication: PRODUCT USED FOR UNKNOWN INDICATION
     Dosage: 800 MG, PRN
     Route: 048
  3. MIRABEGRON [Suspect]
     Active Substance: MIRABEGRON
     Indication: POLLAKIURIA
     Dosage: 25 MG, 1 TABLET DAILY
     Route: 048

REACTIONS (3)
  - Prescribed overdose [Unknown]
  - Myocardial infarction [Fatal]
  - Speech disorder [Unknown]

NARRATIVE: CASE EVENT DATE: 2017
